FAERS Safety Report 4743767-5 (Version None)
Quarter: 2005Q3

REPORT INFORMATION
  Report Type: 
  Country: None (occurrence: None)
  Receive Date: 20050812
  Receipt Date: 20050714
  Transmission Date: 20060218
  Serious: Yes (Hospitalization)
  Sender: FDA-Public Use
  Company Number: 2005013672

PATIENT
  Age: 38 Year
  Sex: Female

DRUGS (13)
  1. LAMICTAL [Suspect]
     Route: 048
     Dates: start: 20050714, end: 20050714
  2. BUSCOPAN [Suspect]
     Route: 048
     Dates: start: 20050714, end: 20050714
  3. DOLORMIN EXTRA [Suspect]
     Dosage: 400MG UNKNOWN
     Route: 048
     Dates: start: 20050714, end: 20050714
  4. DOXEPINE [Suspect]
     Route: 048
     Dates: start: 20050714, end: 20050714
  5. MOVICOL [Suspect]
     Route: 048
     Dates: start: 20050714, end: 20050714
  6. NOVAMINSULFON [Suspect]
     Route: 048
     Dates: start: 20050714, end: 20050714
  7. PANTOPRAZOLE SODIUM [Suspect]
     Route: 048
     Dates: start: 20050714, end: 20050714
  8. PARACODIN N [Suspect]
     Dosage: 10MGG UNKNOWN
     Route: 048
     Dates: start: 20050714, end: 20050714
  9. PINIMENTHOL [Suspect]
     Route: 048
     Dates: start: 20050714, end: 20050714
  10. SEROQUEL [Suspect]
     Dosage: 300MG UNKNOWN
     Route: 048
     Dates: start: 20050714, end: 20050714
  11. SILOMAT [Suspect]
     Route: 048
     Dates: start: 20050714, end: 20050714
  12. SIMVASTATIN [Suspect]
     Route: 048
     Dates: start: 20050714, end: 20050714
  13. VOMACUR [Suspect]
     Dosage: 50MG UNKNOWN
     Route: 048
     Dates: start: 20050714, end: 20050714

REACTIONS (3)
  - COMA [None]
  - SUICIDE ATTEMPT [None]
  - VOMITING [None]
